FAERS Safety Report 8623587-1 (Version None)
Quarter: 2012Q3

REPORT INFORMATION
  Report Type: 
  Country: None (occurrence: None)
  Receive Date: 20120827
  Receipt Date: 20120822
  Transmission Date: 20120928
  Serious: Yes (Life-Threatening)
  Sender: FDA-Public Use
  Company Number: US-ASTELLAS-2012US007209

PATIENT
  Age: 11 Year
  Sex: Male

DRUGS (7)
  1. PROGRAF [Suspect]
     Indication: LIVER TRANSPLANT
     Dosage: UNK
     Route: 065
  2. BLOOD AND RELATED PRODUCTS [Concomitant]
     Indication: COAGULOPATHY
     Dosage: UNK
     Route: 042
  3. FACTOR VII [Concomitant]
     Indication: COAGULOPATHY
     Dosage: UNK
     Route: 042
  4. MYCOPHENOLATE MEFETIL [Concomitant]
     Indication: LIVER TRANSPLANT
     Dosage: UNK
     Route: 065
  5. UNSPECIFIED VASOPRESSORS [Concomitant]
     Indication: HYPOTENSION
     Dosage: UNK
     Route: 065
  6. UNSPECIFIED STEROID [Concomitant]
     Indication: LIVER TRANSPLANT
     Dosage: UNK
     Route: 065
  7. SODIUM CHLORIDE [Concomitant]
     Indication: HYPONATRAEMIA
     Dosage: UNK
     Route: 065

REACTIONS (2)
  - DEMYELINATION [None]
  - OSMOTIC DEMYELINATION SYNDROME [None]
